FAERS Safety Report 25900240 (Version 2)
Quarter: 2025Q4

REPORT INFORMATION
  Report Type: Spontaneous
  Country: JP (occurrence: JP)
  Receive Date: 20251009
  Receipt Date: 20251121
  Transmission Date: 20260117
  Serious: Yes (Hospitalization)
  Sender: BOEHRINGER INGELHEIM
  Company Number: JP-NBI-2025-BI-027776

PATIENT
  Age: 75 Year
  Sex: Male

DRUGS (3)
  1. OFEV [Suspect]
     Active Substance: NINTEDANIB
     Indication: Idiopathic pulmonary fibrosis
     Dates: start: 20250318, end: 20250711
  2. OFEV [Suspect]
     Active Substance: NINTEDANIB
  3. OFEV [Suspect]
     Active Substance: NINTEDANIB

REACTIONS (28)
  - Appendicitis [Recovered/Resolved]
  - Appendicitis perforated [Recovered/Resolved]
  - Abdominal abscess [Recovered/Resolved]
  - Diarrhoea [Recovered/Resolved]
  - Forced vital capacity decreased [Not Recovered/Not Resolved]
  - Abdominal pain [Recovered/Resolved]
  - Tooth extraction [Not Recovered/Not Resolved]
  - Gingival recession [Not Recovered/Not Resolved]
  - Malocclusion [Not Recovered/Not Resolved]
  - Post procedural swelling [Recovered/Resolved]
  - Heat illness [Not Recovered/Not Resolved]
  - Headache [Not Recovered/Not Resolved]
  - Drug ineffective [Unknown]
  - Dyspnoea [Not Recovered/Not Resolved]
  - Decreased appetite [Not Recovered/Not Resolved]
  - Malaise [Not Recovered/Not Resolved]
  - Hypophagia [Not Recovered/Not Resolved]
  - Food aversion [Not Recovered/Not Resolved]
  - Dysphonia [Not Recovered/Not Resolved]
  - Constipation [Recovered/Resolved]
  - Diarrhoea [Not Recovered/Not Resolved]
  - Anal incontinence [Not Recovered/Not Resolved]
  - Ageusia [Recovering/Resolving]
  - Abdominal distension [Not Recovered/Not Resolved]
  - Vocal cord disorder [Not Recovered/Not Resolved]
  - Brain fog [Unknown]
  - Arthralgia [Unknown]
  - Oropharyngeal pain [Recovering/Resolving]

NARRATIVE: CASE EVENT DATE: 20250531
